FAERS Safety Report 4595176-X (Version None)
Quarter: 2005Q1

REPORT INFORMATION
  Report Type: 
  Country: None (occurrence: None)
  Receive Date: 20050223
  Receipt Date: 20050215
  Transmission Date: 20050727
  Serious: Yes (Other)
  Sender: FDA-Public Use
  Company Number: 2005031807

PATIENT
  Age: 47 Year
  Sex: Male
  Weight: 112.0385 kg

DRUGS (9)
  1. DILANTIN KAPSEAL [Suspect]
     Indication: CONVULSION
     Dosage: 600 MG (100 MG, 2 IN 1 D), ORAL
     Route: 048
  2. ATENOLOL [Concomitant]
  3. DIURETICS (DIURETICS) [Concomitant]
  4. DOXEPIN HYDROCHLORIDE (DOXEPIN HYDROCHLORIDE) [Concomitant]
  5. BELLASPON RETARD (BELLADONA ALKALOIDS, ERGOTAMINE) [Concomitant]
  6. DIAZEPAM [Concomitant]
  7. AXOTAL (OLD FORM) (BUTALBITAL, CAFFEINE, PARACETAMOL) [Concomitant]
  8. FENOFIBRATE [Concomitant]
  9. EZETIMIBE (EZETIMIBE) [Concomitant]

REACTIONS (2)
  - BLOOD CHOLESTEROL INCREASED [None]
  - BRAIN NEOPLASM [None]
